FAERS Safety Report 5329831-0 (Version None)
Quarter: 2007Q2

REPORT INFORMATION
  Report Type: 
  Country: None (occurrence: None)
  Receive Date: 20070517
  Receipt Date: 20070517
  Transmission Date: 20071010
  Serious: Yes (Hospitalization)
  Sender: FDA-Public Use
  Company Number: None

PATIENT
  Age: 65 Year
  Sex: Male
  Weight: 71 kg

DRUGS (5)
  1. VELCADE [Suspect]
     Indication: LYMPHOMA
     Dosage: 1.6 MG/M2 WEEKLY DAYS 1,8,15,42 IV
     Route: 042
     Dates: start: 20070102
  2. VELCADE [Suspect]
     Indication: LYMPHOMA
     Dosage: 1.6 MG/M2 WEEKLY DAYS 1,8,15,42 IV
     Route: 042
     Dates: start: 20070206
  3. VELCADE [Suspect]
     Indication: LYMPHOMA
     Dosage: 1.6 MG/M2 WEEKLY DAYS 1,8,15,42 IV
     Route: 042
     Dates: start: 20070314
  4. VELCADE [Suspect]
     Indication: LYMPHOMA
     Dosage: 1.6 MG/M2 WEEKLY DAYS 1,8,15,42 IV
     Route: 042
     Dates: start: 20070418
  5. ASPIRIN [Concomitant]

REACTIONS (1)
  - CEREBROVASCULAR ACCIDENT [None]
